FAERS Safety Report 6190646-5 (Version None)
Quarter: 2009Q2

REPORT INFORMATION
  Report Type: 
  Country: None (occurrence: None)
  Receive Date: 20090514
  Receipt Date: 20090512
  Transmission Date: 20091009
  Serious: Yes (Other)
  Sender: FDA-Public Use
  Company Number: SA-ABBOTT-09P-259-0572993-00

PATIENT

DRUGS (1)
  1. KLACID SUSPENSION [Suspect]
     Indication: DRUG USE FOR UNKNOWN INDICATION

REACTIONS (1)
  - INCORRECT DOSE ADMINISTERED [None]
